FAERS Safety Report 13527032 (Version 1)
Quarter: 2017Q2

REPORT INFORMATION
  Report Type: Spontaneous
  Country: TR (occurrence: TR)
  Receive Date: 20170509
  Receipt Date: 20170509
  Transmission Date: 20170830
  Serious: Yes (Death, Hospitalization, Other)
  Sender: FDA-Public Use
  Company Number: TR-APOTEX-2017AP011387

PATIENT
  Age: 18 Year
  Sex: Female
  Weight: 56 kg

DRUGS (1)
  1. AS-AMLO [Suspect]
     Active Substance: AMLODIPINE BESYLATE
     Indication: SUICIDE ATTEMPT
     Dosage: 120 MG, TOTAL
     Route: 048

REACTIONS (15)
  - Hypoxia [Fatal]
  - Myocardial depression [Unknown]
  - Sinus tachycardia [Unknown]
  - Hypotension [Unknown]
  - Lactic acidosis [Unknown]
  - Troponin increased [Unknown]
  - Metabolic acidosis [Fatal]
  - Overdose [Unknown]
  - Suicide attempt [Unknown]
  - Loss of consciousness [Unknown]
  - Condition aggravated [Unknown]
  - Pulmonary oedema [Fatal]
  - Cardiac arrest [Fatal]
  - Toxicity to various agents [Unknown]
  - Sinus bradycardia [Unknown]
